FAERS Safety Report 8458247-3 (Version None)
Quarter: 2012Q2

REPORT INFORMATION
  Report Type: 
  Country: None (occurrence: None)
  Receive Date: 20120323
  Receipt Date: 20111024
  Transmission Date: 20120825
  Serious: Yes (Hospitalization)
  Sender: FDA-Public Use
  Company Number: 163-21880-11102710

PATIENT
  Age: 50 Year
  Sex: Male

DRUGS (3)
  1. REVLIMID [Suspect]
     Indication: MULTIPLE MYELOMA
     Dosage: 25;10 MG, DAILY ON DAYS 1 THROUGH 21 AS DIRECTED, PO
     Route: 048
     Dates: start: 20111001
  2. REVLIMID [Suspect]
     Indication: MULTIPLE MYELOMA
     Dosage: 25;10 MG, DAILY ON DAYS 1 THROUGH 21 AS DIRECTED, PO
     Route: 048
     Dates: start: 20111009
  3. REVLIMID [Suspect]

REACTIONS (3)
  - FATIGUE [None]
  - ANAEMIA [None]
  - RENAL FAILURE ACUTE [None]
